FAERS Safety Report 8138631-8 (Version None)
Quarter: 2012Q1

REPORT INFORMATION
  Report Type: 
  Country: None (occurrence: None)
  Receive Date: 20120215
  Receipt Date: 20120202
  Transmission Date: 20120608
  Serious: Yes (Hospitalization)
  Sender: FDA-Public Use
  Company Number: FR-ELI_LILLY_AND_COMPANY-FR201109007090

PATIENT
  Sex: Male
  Weight: 70 kg

DRUGS (3)
  1. GEMCITABINE HYDROCHLORIDE [Suspect]
     Indication: NON-SMALL CELL LUNG CANCER STAGE IV
     Dosage: 2357 MG, OTHER 21 DAYS/CYCLE
     Route: 042
     Dates: start: 20110907
  2. CISPLATIN [Suspect]
     Indication: NON-SMALL CELL LUNG CANCER STAGE IV
     Dosage: 142 MG, OTHER 21 DAYS/CYCLE
     Route: 042
     Dates: start: 20110907
  3. NECITUMUMAB (11F8) (LY3012211) [Suspect]
     Indication: NON-SMALL CELL LUNG CANCER STAGE IV
     Dosage: 800 MG, OTHER 21 DAYS/CYCLE
     Route: 042
     Dates: start: 20110907

REACTIONS (3)
  - HYPOCALCAEMIA [None]
  - ORAL FUNGAL INFECTION [None]
  - HYPONATRAEMIA [None]
